FAERS Safety Report 13578894 (Version 1)
Quarter: 2017Q2

REPORT INFORMATION
  Report Type: Spontaneous
  Country: US (occurrence: US)
  Receive Date: 20170524
  Receipt Date: 20170524
  Transmission Date: 20170830
  Serious: Yes (Hospitalization)
  Sender: FDA-Public Use
  Company Number: None

PATIENT
  Sex: Male
  Weight: 81.8 kg

DRUGS (14)
  1. LEDIPASVIR GILEAD [Suspect]
     Active Substance: LEDIPASVIR
     Indication: HEPATITIS C VIRUS TEST
     Route: 048
     Dates: start: 20170411
  2. VALCYTE [Concomitant]
     Active Substance: VALGANCICLOVIR HYDROCHLORIDE
  3. PREDNISONE. [Concomitant]
     Active Substance: PREDNISONE
  4. MYFORTIC [Concomitant]
     Active Substance: MYCOPHENOLATE SODIUM
  5. PREDNISONE. [Concomitant]
     Active Substance: PREDNISONE
  6. SOVALDI [Concomitant]
     Active Substance: SOFOSBUVIR
  7. SOFOSBUVIR GILEAD [Suspect]
     Active Substance: SOFOSBUVIR
     Route: 048
     Dates: start: 20170411
  8. KEPPRA [Concomitant]
     Active Substance: LEVETIRACETAM
  9. LEDIPASVIR-SOFOSBUVIR [Concomitant]
     Active Substance: LEDIPASVIR\SOFOSBUVIR
  10. EVEROLIMUS [Concomitant]
     Active Substance: EVEROLIMUS
  11. NYSTATIN. [Concomitant]
     Active Substance: NYSTATIN
  12. CITRACAL + D [Concomitant]
     Active Substance: CALCIUM CITRATE\VITAMIN D
  13. FERROUS SULFATE. [Concomitant]
     Active Substance: FERROUS SULFATE
  14. DILAUDID [Concomitant]
     Active Substance: HYDROMORPHONE HYDROCHLORIDE

REACTIONS (2)
  - Liver function test increased [None]
  - Alpha 1 foetoprotein increased [None]

NARRATIVE: CASE EVENT DATE: 20170503
